FAERS Safety Report 6238431-X (Version None)
Quarter: 2009Q2

REPORT INFORMATION
  Report Type: 
  Country: None (occurrence: None)
  Receive Date: 20090622
  Receipt Date: 20090615
  Transmission Date: 20091009
  Serious: Yes (Hospitalization)
  Sender: FDA-Public Use
  Company Number: US-BAYER-200923811NA

PATIENT
  Sex: Female

DRUGS (1)
  1. YAZ [Suspect]
     Indication: DRUG USE FOR UNKNOWN INDICATION
     Route: 048
     Dates: start: 20090301, end: 20090531

REACTIONS (6)
  - ANXIETY [None]
  - DEPRESSION [None]
  - FOOD INTOLERANCE [None]
  - HYPOPHAGIA [None]
  - INSOMNIA [None]
  - TREMOR [None]
